FAERS Safety Report 20461285 (Version 4)
Quarter: 2022Q1

REPORT INFORMATION
  Report Type: Spontaneous
  Country: US (occurrence: US)
  Receive Date: 20220211
  Receipt Date: 20220328
  Transmission Date: 20220423
  Serious: Yes (Other)
  Sender: FDA-Public Use
  Company Number: US-PFIZER INC-202200221728

PATIENT
  Age: 66 Year
  Sex: Male
  Weight: 113.39 kg

DRUGS (2)
  1. PHENYTOIN SODIUM [Suspect]
     Active Substance: PHENYTOIN SODIUM
     Indication: Seizure
     Dosage: 1800 MG, 2X/DAY (3 CAPSULES OF 600 MG TWICE DAILY)
     Dates: start: 2021
  2. PHENYTOIN SODIUM [Suspect]
     Active Substance: PHENYTOIN SODIUM
     Dosage: 600 MG
     Dates: start: 202105

REACTIONS (4)
  - Drug ineffective [Not Recovered/Not Resolved]
  - Head injury [Not Recovered/Not Resolved]
  - Hip surgery [Unknown]
  - Prescribed overdose [Unknown]

NARRATIVE: CASE EVENT DATE: 20210101
